FAERS Safety Report 12617603 (Version 1)
Quarter: 2016Q3

REPORT INFORMATION
  Report Type: Spontaneous
  Country: US (occurrence: US)
  Receive Date: 20160803
  Receipt Date: 20160803
  Transmission Date: 20161109
  Serious: No
  Sender: FDA-Public Use
  Company Number: US-PFIZER INC-2016338542

PATIENT
  Sex: Male

DRUGS (1)
  1. VIAGRA [Suspect]
     Active Substance: SILDENAFIL CITRATE
     Dosage: 100 MG, UNK (TAKE IT AFTER DINNER)

REACTIONS (4)
  - Drug ineffective [Unknown]
  - Alcohol interaction [Unknown]
  - Expired product administered [Unknown]
  - Food interaction [Unknown]

NARRATIVE: CASE EVENT DATE: 2016
